FAERS Safety Report 25104730 (Version 2)
Quarter: 2025Q1

REPORT INFORMATION
  Report Type: Spontaneous
  Country: US (occurrence: US)
  Receive Date: 20250321
  Receipt Date: 20250325
  Transmission Date: 20250409
  Serious: No
  Sender: BAYER HEALTHCARE PHARMACEUTICALS INC.
  Company Number: US-BAYER-2025A037833

PATIENT
  Age: 15 Year
  Sex: Female

DRUGS (1)
  1. CLIMARA [Suspect]
     Active Substance: ESTRADIOL
     Indication: Hyperandrogenism
     Route: 062

REACTIONS (3)
  - Product use issue [None]
  - Product prescribing issue [None]
  - Product use in unapproved indication [None]
